FAERS Safety Report 9835533 (Version 2)
Quarter: 2014Q1

REPORT INFORMATION
  Report Type: Spontaneous
  Country: US (occurrence: US)
  Receive Date: 20140122
  Receipt Date: 20140122
  Transmission Date: 20141002
  Serious: No
  Sender: FDA-Public Use
  Company Number: US-BRISTOL-MYERS SQUIBB COMPANY-19721414

PATIENT
  Age: 81 Year
  Sex: Female
  Weight: 63.49 kg

DRUGS (7)
  1. ELIQUIS [Suspect]
     Indication: ATRIAL FIBRILLATION
     Dosage: 1DF: 2.5MG BID?16OCT2013
     Route: 048
     Dates: start: 20130920
  2. LIVALO [Concomitant]
  3. SOTALOL [Concomitant]
  4. JANUVIA [Concomitant]
  5. AZOR [Concomitant]
     Dosage: 1DF:10/40
  6. BYSTOLIC [Concomitant]
  7. ASPIRIN [Concomitant]

REACTIONS (1)
  - Wrong technique in drug usage process [Unknown]
